FAERS Safety Report 10017067 (Version 2)
Quarter: 2014Q1

REPORT INFORMATION
  Report Type: Report from Study
  Country: US (occurrence: US)
  Receive Date: 20140318
  Receipt Date: 20140318
  Transmission Date: 20141002
  Serious: Yes (Other)
  Sender: FDA-Public Use
  Company Number: US-ROCHE-1317972

PATIENT
  Sex: Female
  Weight: 108.96 kg

DRUGS (18)
  1. MYCOPHENOLATE MOFETIL [Suspect]
     Indication: RENAL TRANSPLANT
     Route: 048
     Dates: start: 201211, end: 201311
  2. CALCITRIOL [Concomitant]
     Route: 048
     Dates: start: 201204
  3. AZATHIOPRINE [Concomitant]
     Indication: RENAL TRANSPLANT
     Route: 065
     Dates: start: 20131205
  4. PREDNISONE [Concomitant]
     Indication: RENAL TRANSPLANT
     Route: 065
     Dates: start: 201211
  5. TACROLIMUS [Concomitant]
     Indication: RENAL TRANSPLANT
     Route: 048
     Dates: start: 201211
  6. ATORVASTATIN [Concomitant]
     Indication: DYSLIPIDAEMIA
     Route: 048
     Dates: start: 20130411, end: 20131205
  7. ATORVASTATIN [Concomitant]
     Route: 048
     Dates: start: 201211, end: 201311
  8. METOPROLOL TARTRATE [Concomitant]
     Indication: HYPERTENSION
     Route: 048
     Dates: start: 20120413, end: 20131205
  9. METOPROLOL TARTRATE [Concomitant]
     Route: 048
     Dates: start: 201211, end: 20131103
  10. LABETALOL [Concomitant]
     Route: 048
     Dates: start: 20131205
  11. NORVASC [Concomitant]
     Route: 048
  12. SODIUM BICARBONATE [Concomitant]
     Route: 048
     Dates: start: 201312
  13. DOCUSATE [Concomitant]
     Indication: CONSTIPATION
     Route: 048
     Dates: start: 201211
  14. POLYETHYLENE GLYCOL [Concomitant]
     Indication: CONSTIPATION
     Route: 048
     Dates: start: 201211
  15. IMURAN [Concomitant]
     Route: 048
     Dates: start: 20131205
  16. AMLODIPINE [Concomitant]
     Indication: HYPERTENSION
     Route: 048
     Dates: start: 201211
  17. FAMOTIDINE [Concomitant]
     Route: 048
     Dates: start: 201211
  18. MIRALAX [Concomitant]
     Indication: CONSTIPATION
     Route: 048
     Dates: start: 201211

REACTIONS (2)
  - Maternal exposure during pregnancy [Unknown]
  - Foetal death [Unknown]
